FAERS Safety Report 9269010 (Version 3)
Quarter: 2013Q3

REPORT INFORMATION
  Report Type: Spontaneous
  Country: US (occurrence: US)
  Receive Date: 20130503
  Receipt Date: 20130716
  Transmission Date: 20140515
  Serious: Yes (Hospitalization)
  Sender: FDA-Public Use
  Company Number: US-BIOGENIDEC-2013BI039156

PATIENT
  Sex: Female

DRUGS (15)
  1. TYSABRI [Suspect]
     Indication: MULTIPLE SCLEROSIS
  2. AVONEX [Concomitant]
     Indication: MULTIPLE SCLEROSIS
     Route: 030
  3. CALCARB WITH VITAMIN D [Concomitant]
     Route: 048
  4. VITAMIN B-12 [Concomitant]
     Route: 048
  5. DOCUSATE [Concomitant]
     Route: 048
  6. DONEPEZIL [Concomitant]
     Route: 048
  7. FAMPRIDINE [Concomitant]
     Route: 048
  8. FAMPRIDINE [Concomitant]
     Route: 048
  9. TRIPLE OMEGA [Concomitant]
     Route: 048
  10. NORTRIPTYLINE [Concomitant]
     Route: 048
  11. NORTRIPTYLINE [Concomitant]
     Route: 048
  12. NORTRIPTYLINE [Concomitant]
     Route: 048
  13. OXYBUTYNIN [Concomitant]
     Route: 048
  14. ROPINIROLE [Concomitant]
     Route: 048
  15. ZANAFLEX [Concomitant]
     Route: 048

REACTIONS (3)
  - Progressive multifocal leukoencephalopathy [Not Recovered/Not Resolved]
  - Convulsion [Unknown]
  - Headache [Recovered/Resolved]
